FAERS Safety Report 4985013-3 (Version None)
Quarter: 2006Q2

REPORT INFORMATION
  Report Type: 
  Country: None (occurrence: None)
  Receive Date: 20060426
  Receipt Date: 20060426
  Transmission Date: 20061013
  Serious: No
  Sender: FDA-Public Use
  Company Number: None

PATIENT
  Age: 25 Year
  Sex: Female
  Weight: 65.7716 kg

DRUGS (1)
  1. AVELOX [Suspect]
     Indication: EAR INFECTION
     Dosage: 1 PILL FOR 10 DAYS  2X A DAY  PO
     Route: 048
     Dates: start: 20040920, end: 20040930

REACTIONS (10)
  - ADVERSE DRUG REACTION [None]
  - FORMICATION [None]
  - GENITAL BURNING SENSATION [None]
  - GENITAL PAIN FEMALE [None]
  - INFLAMMATION [None]
  - NERVE INJURY [None]
  - NEURALGIA [None]
  - PRURITUS GENITAL [None]
  - SKIN DISORDER [None]
  - SMEAR CERVIX ABNORMAL [None]
